FAERS Safety Report 8270651-5 (Version None)
Quarter: 2012Q2

REPORT INFORMATION
  Report Type: 
  Country: None (occurrence: None)
  Receive Date: 20120410
  Receipt Date: 20120326
  Transmission Date: 20120825
  Serious: Yes (Death)
  Sender: FDA-Public Use
  Company Number: IT-SHIRE-SPV1-2012-00308

PATIENT
  Sex: Male

DRUGS (2)
  1. METHADONE HCL [Concomitant]
     Indication: PAIN
     Dosage: UNK, UNKNOWN
     Route: 065
  2. VPRIV [Suspect]
     Indication: GAUCHER'S DISEASE
     Dosage: 30 U/KG, ONE DOSE
     Route: 041
     Dates: start: 20120310

REACTIONS (1)
  - MYOCARDIAL INFARCTION [None]
